FAERS Safety Report 13092437 (Version 1)
Quarter: 2017Q1

REPORT INFORMATION
  Report Type: Spontaneous
  Country: US (occurrence: US)
  Receive Date: 20170106
  Receipt Date: 20170106
  Transmission Date: 20170428
  Serious: No
  Sender: FDA-Public Use
  Company Number: US-JNJFOC-20161122619

PATIENT
  Age: 82 Year
  Sex: Male
  Weight: 79.38 kg

DRUGS (2)
  1. TYLENOL REGULAR STRENGTH [Suspect]
     Active Substance: ACETAMINOPHEN
     Indication: PAIN IN EXTREMITY
     Dosage: 1-2 TABLETS, AS NEEDED.
     Route: 048
  2. TYLENOL REGULAR STRENGTH [Suspect]
     Active Substance: ACETAMINOPHEN
     Indication: STOMATITIS
     Dosage: 1-2 TABLETS, AS NEEDED.
     Route: 048

REACTIONS (3)
  - Off label use [Unknown]
  - Incorrect product storage [Unknown]
  - Product use issue [Unknown]
